FAERS Safety Report 25425693 (Version 1)
Quarter: 2025Q2

REPORT INFORMATION
  Report Type: Spontaneous
  Country: GB (occurrence: GB)
  Receive Date: 20250611
  Receipt Date: 20250611
  Transmission Date: 20250716
  Serious: Yes (Other)
  Sender: ALKEM
  Company Number: None

PATIENT
  Age: 49 Year
  Sex: Female

DRUGS (1)
  1. VARENICLINE [Suspect]
     Active Substance: VARENICLINE
     Indication: Smoking cessation therapy
     Dosage: 0.5 MILLIGRAM, BID (TWICE A DAY)
     Route: 065

REACTIONS (3)
  - Mania [Recovering/Resolving]
  - Mental disorder [Unknown]
  - Malaise [Unknown]
